FAERS Safety Report 7682999-3 (Version None)
Quarter: 2011Q3

REPORT INFORMATION
  Report Type: 
  Country: None (occurrence: None)
  Receive Date: 20110815
  Receipt Date: 20110811
  Transmission Date: 20111222
  Serious: Yes (Other)
  Sender: FDA-Public Use
  Company Number: AU-PFIZER INC-2011184179

PATIENT
  Age: 29 Year
  Sex: Female

DRUGS (1)
  1. VARENICLINE TARTRATE [Suspect]
     Dosage: UNK
     Dates: start: 20110101

REACTIONS (10)
  - CRYING [None]
  - DIZZINESS [None]
  - DYSPEPSIA [None]
  - FRUSTRATION [None]
  - NAUSEA [None]
  - AGGRESSION [None]
  - ABDOMINAL PAIN UPPER [None]
  - MOOD SWINGS [None]
  - ANGER [None]
  - ABDOMINAL DISTENSION [None]
